FAERS Safety Report 5754825-0 (Version None)
Quarter: 2008Q2

REPORT INFORMATION
  Report Type: 
  Country: None (occurrence: None)
  Receive Date: 20080527
  Receipt Date: 20080515
  Transmission Date: 20081010
  Serious: Yes (Other)
  Sender: FDA-Public Use
  Company Number: 08H-167-0314305-00

PATIENT
  Sex: Male
  Weight: 1.45 kg

DRUGS (16)
  1. NOREPINPHRINE INJECTION (NOREPINEPHRINE BITARTRATE INJECTION) (NOREPPI [Suspect]
     Dosage: INTRAPLACENTAL
  2. PROPOFOL [Suspect]
     Dosage: INTRAPLACENTAL
  3. REMIFENTANIL (REMIFENTANIL) [Concomitant]
  4. DEXTROSE 5% (GLUCOSE) [Concomitant]
  5. AMLODIPINE [Concomitant]
  6. BETAMETHASONE [Concomitant]
  7. BLOOD (BLOOD, WHOLE) [Concomitant]
  8. FUROSEMIDE [Concomitant]
  9. GENTAMICIN [Concomitant]
  10. MANNITOL [Concomitant]
  11. METARAMINOL (METARAMINOL) [Concomitant]
  12. PENICILLIN G [Concomitant]
  13. SUXAMETHONIUM (SUXAMETHONIUM) [Concomitant]
  14. THIOPENTAL SODIUM [Concomitant]
  15. TINZAPARIN (TINZAPARIN) [Concomitant]
  16. OXYTOCIN [Concomitant]

REACTIONS (6)
  - APGAR SCORE LOW [None]
  - CAESAREAN SECTION [None]
  - LABORATORY TEST ABNORMAL [None]
  - MATERNAL DRUGS AFFECTING FOETUS [None]
  - PLACENTAL INSUFFICIENCY [None]
  - SMALL FOR DATES BABY [None]
